FAERS Safety Report 23568968 (Version 1)
Quarter: 2024Q1

REPORT INFORMATION
  Report Type: Report from Study
  Country: US (occurrence: US)
  Receive Date: 20240227
  Receipt Date: 20240227
  Transmission Date: 20240410
  Serious: No
  Sender: FDA-Public Use
  Company Number: US-ORG100014127-2023001024

PATIENT
  Age: 34 Year
  Sex: Female

DRUGS (4)
  1. METOPIRONE [Suspect]
     Active Substance: METYRAPONE
     Indication: Adrenal gland cancer
     Dosage: 04 CAPSULES OF 250MG THREE TIMES DAILY.
     Route: 048
     Dates: start: 20230617
  2. HYDROCO/APAP TAB 10-325MG [Concomitant]
     Indication: Product used for unknown indication
  3. LYSODREN [Concomitant]
     Active Substance: MITOTANE
     Indication: Product used for unknown indication
     Dosage: 2500 MG TWICE DAILY
     Route: 048
  4. ONDANSETRON TAB 4MG ODT [Concomitant]
     Indication: Product used for unknown indication
     Route: 048

REACTIONS (1)
  - Off label use [Not Recovered/Not Resolved]

NARRATIVE: CASE EVENT DATE: 20230617
